FAERS Safety Report 16240580 (Version 1)
Quarter: 2019Q2

REPORT INFORMATION
  Report Type: Spontaneous
  Country: AU (occurrence: AU)
  Receive Date: 20190425
  Receipt Date: 20190425
  Transmission Date: 20190711
  Serious: Yes (Other)
  Sender: FDA-Public Use
  Company Number: AU-MYLANLABS-2019M1038363

PATIENT
  Sex: Male

DRUGS (1)
  1. PROGOUT 300 [Suspect]
     Active Substance: ALLOPURINOL
     Indication: PRODUCT USED FOR UNKNOWN INDICATION
     Dosage: 0.5 DOSAGE FORM, QD

REACTIONS (6)
  - Burning mouth syndrome [Unknown]
  - Skin exfoliation [Unknown]
  - Dry skin [Unknown]
  - Eye pain [Unknown]
  - Anal pruritus [Unknown]
  - Arthralgia [Unknown]
